FAERS Safety Report 7113315-3 (Version None)
Quarter: 2010Q4

REPORT INFORMATION
  Report Type: 
  Country: None (occurrence: None)
  Receive Date: 20101119
  Receipt Date: 20101102
  Transmission Date: 20110411
  Serious: No
  Sender: FDA-Public Use
  Company Number: A0878678A

PATIENT
  Age: 70 Year
  Sex: Female

DRUGS (3)
  1. WELLBUTRIN SR [Suspect]
     Indication: DEPRESSION
     Dosage: 150MG TWICE PER DAY
     Route: 048
     Dates: start: 20100818
  2. BUPROPION [Suspect]
     Indication: DEPRESSION
     Route: 048
  3. DEPAKOTE [Concomitant]

REACTIONS (7)
  - APATHY [None]
  - ASTHENIA [None]
  - DEPRESSION [None]
  - DRUG INEFFECTIVE [None]
  - HYPERSOMNIA [None]
  - NAUSEA [None]
  - PRODUCT SUBSTITUTION ISSUE [None]
